FAERS Safety Report 19440732 (Version 1)
Quarter: 2021Q2

REPORT INFORMATION
  Report Type: Spontaneous
  Country: JP (occurrence: JP)
  Receive Date: 20210621
  Receipt Date: 20210621
  Transmission Date: 20210717
  Serious: Yes (Other)
  Sender: FDA-Public Use
  Company Number: JP-SA-2021SA195290

PATIENT
  Age: 70 Year
  Sex: Female

DRUGS (5)
  1. FLUORO URACIL [Concomitant]
     Active Substance: FLUOROURACIL
     Dosage: UNK
  2. ELPLAT [Suspect]
     Active Substance: OXALIPLATIN
     Dosage: UNK (INJECTION)
     Dates: start: 20200807
  3. ELPLAT [Suspect]
     Active Substance: OXALIPLATIN
     Dosage: UNK
     Dates: start: 20210407
  4. BEVACIZUMAB. [Concomitant]
     Active Substance: BEVACIZUMAB
     Dosage: UNK
  5. FOLINIC ACID [Concomitant]
     Active Substance: LEUCOVORIN
     Dosage: UNK

REACTIONS (1)
  - Shock [Recovered/Resolved]

NARRATIVE: CASE EVENT DATE: 20210407
